FAERS Safety Report 6855193-3 (Version None)
Quarter: 2010Q3

REPORT INFORMATION
  Report Type: 
  Country: None (occurrence: None)
  Receive Date: 20100717
  Receipt Date: 20090414
  Transmission Date: 20110219
  Serious: No
  Sender: FDA-Public Use
  Company Number: US-PFIZER INC-2007104620

PATIENT
  Age: 64 Year
  Sex: Female
  Weight: 53.5 kg

DRUGS (4)
  1. CHANTIX [Suspect]
     Indication: SMOKING CESSATION THERAPY
     Dosage: 1 MG, 2X/DAY
     Dates: start: 20070727
  2. IBUPROFEN [Concomitant]
     Indication: ARTHRITIS
  3. DARVOCET [Concomitant]
     Indication: ARTHRITIS
  4. ANTIHYPERTENSIVES [Concomitant]
     Indication: HYPERTENSION

REACTIONS (7)
  - ABNORMAL DREAMS [None]
  - CONSTIPATION [None]
  - FAECES DISCOLOURED [None]
  - INCORRECT DOSE ADMINISTERED [None]
  - INSOMNIA [None]
  - NIGHTMARE [None]
  - SLEEP DISORDER [None]
